FAERS Safety Report 4372116-X (Version None)
Quarter: 2004Q2

REPORT INFORMATION
  Report Type: 
  Country: None (occurrence: None)
  Receive Date: 20040602
  Receipt Date: 20040518
  Transmission Date: 20050107
  Serious: Yes (Other)
  Sender: FDA-Public Use
  Company Number: GB-JNJFOC-20040300993

PATIENT
  Age: 13 Year
  Sex: Female
  Weight: 61 kg

DRUGS (3)
  1. CONCERTA [Suspect]
     Indication: ATTENTION DEFICIT/HYPERACTIVITY DISORDER
     Dosage: 36 MG, 1 IN 1 DAY, ORAL
     Route: 048
     Dates: start: 20040129, end: 20040317
  2. RITALIN [Suspect]
     Indication: ATTENTION DEFICIT/HYPERACTIVITY DISORDER
     Dosage: 10 MG, IN 1 DAY; 15 MG, 2 IN 1 DAY
     Dates: end: 20040128
  3. RITALIN [Suspect]
     Indication: ATTENTION DEFICIT/HYPERACTIVITY DISORDER
     Dosage: 10 MG, IN 1 DAY; 15 MG, 2 IN 1 DAY
     Dates: start: 20031209

REACTIONS (2)
  - ANOREXIA [None]
  - WEIGHT DECREASED [None]
